FAERS Safety Report 21352477 (Version 1)
Quarter: 2022Q3

REPORT INFORMATION
  Report Type: Report from Study
  Country: BE (occurrence: BE)
  Receive Date: 20220920
  Receipt Date: 20220920
  Transmission Date: 20221027
  Serious: Yes (Hospitalization, Other)
  Sender: FDA-Public Use
  Company Number: BE-BRISTOL-MYERS SQUIBB COMPANY-2022-052548

PATIENT
  Age: 77 Year
  Sex: Male

DRUGS (4)
  1. OPDIVO [Suspect]
     Active Substance: NIVOLUMAB
     Indication: Malignant melanoma
     Route: 042
     Dates: start: 20220527
  2. OPDIVO [Suspect]
     Active Substance: NIVOLUMAB
     Route: 041
  3. YERVOY [Suspect]
     Active Substance: IPILIMUMAB
     Indication: Malignant melanoma
     Route: 042
     Dates: start: 20220527
  4. YERVOY [Suspect]
     Active Substance: IPILIMUMAB
     Route: 041

REACTIONS (10)
  - Metastases to central nervous system [Unknown]
  - Cognitive disorder [Unknown]
  - Fatigue [Unknown]
  - Headache [Unknown]
  - Blood glucose abnormal [Unknown]
  - Weight decreased [Unknown]
  - Decreased appetite [Unknown]
  - Weight decreased [Unknown]
  - Malignant neoplasm progression [Unknown]
  - Liver disorder [Unknown]

NARRATIVE: CASE EVENT DATE: 20220826
